FAERS Safety Report 8990026 (Version 1)
Quarter: 2012Q4

REPORT INFORMATION
  Report Type: 
  Country: JP (occurrence: JP)
  Receive Date: 20121228
  Receipt Date: 20121228
  Transmission Date: 20130627
  Serious: Yes (Life-Threatening, Other)
  Sender: FDA-Public Use
  Company Number: JP-ABBOTT-12P-087-1010200-00

PATIENT
  Age: 55 Year
  Sex: Female
  Weight: 62 kg

DRUGS (8)
  1. HUMIRA [Suspect]
     Indication: PRODUCT USED FOR UNKNOWN INDICATION
     Route: 058
     Dates: start: 20101014, end: 20121006
  2. METHOTREXATE [Concomitant]
     Indication: RHEUMATOID ARTHRITIS
     Route: 048
     Dates: start: 20100109, end: 20110512
  3. METHOTREXATE [Concomitant]
     Route: 048
     Dates: start: 20110512, end: 20121115
  4. CELECOXIB [Concomitant]
     Indication: RHEUMATOID ARTHRITIS
     Dates: start: 20090907, end: 20121115
  5. FOLIC ACID [Concomitant]
     Indication: RHEUMATOID ARTHRITIS
     Dosage: 5mg/week
     Dates: start: 20100109, end: 20121115
  6. GLIMEPIRIDE [Concomitant]
     Indication: DIABETES MELLITUS
     Route: 048
     Dates: start: 20040705, end: 20121115
  7. PIOGLITAZONE HYDROCHLORIDE [Concomitant]
     Indication: DIABETES MELLITUS
     Route: 048
     Dates: start: 20080509, end: 20121115
  8. BUCILLAMINE [Concomitant]
     Indication: DIABETES MELLITUS
     Dosage: 200 mg daily
     Dates: start: 20040705

REACTIONS (4)
  - Arthropathy [Unknown]
  - Breast cancer [Recovered/Resolved]
  - Arthropathy [Unknown]
  - Drug ineffective [Unknown]
